FAERS Safety Report 6624046-8 (Version None)
Quarter: 2010Q1

REPORT INFORMATION
  Report Type: 
  Country: None (occurrence: None)
  Receive Date: 20100310
  Receipt Date: 20100226
  Transmission Date: 20100710
  Serious: Yes (Other)
  Sender: FDA-Public Use
  Company Number: US-ELI_LILLY_AND_COMPANY-US200907002462

PATIENT
  Sex: Female

DRUGS (8)
  1. CYMBALTA [Suspect]
     Indication: ANXIETY
     Dosage: 60 MG, UNKNOWN
     Dates: start: 20080725, end: 20090306
  2. XANAX [Concomitant]
     Indication: ANXIETY
     Dosage: 0.5 MG, UNKNOWN
     Dates: start: 20090303
  3. ORTHO TRI-CYCLEN LO [Concomitant]
     Indication: CONTRACEPTION
     Dosage: UNK, UNKNOWN
  4. FISH OIL [Concomitant]
     Dosage: UNK, UNKNOWN
  5. MULTI-VITAMIN [Concomitant]
     Dosage: UNK, UNKNOWN
  6. HYDROCODONE BITARTRATE AND ACETAMINOPHEN [Concomitant]
  7. IBUPROFEN [Concomitant]
  8. ALCOHOL [Concomitant]

REACTIONS (1)
  - LEUKOPENIA [None]
